FAERS Safety Report 10440296 (Version 1)
Quarter: 2014Q3

REPORT INFORMATION
  Report Type: Spontaneous
  Country: US (occurrence: US)
  Receive Date: 20140909
  Receipt Date: 20140909
  Transmission Date: 20150326
  Serious: Yes (Hospitalization)
  Sender: FDA-Public Use
  Company Number: PHHY2014US109589

PATIENT
  Age: 14 Month
  Sex: Male
  Weight: 10 kg

DRUGS (5)
  1. BACLOFEN. [Suspect]
     Active Substance: BACLOFEN
  2. GABAPENTIN. [Suspect]
     Active Substance: GABAPENTIN
  3. KETAMINE [Suspect]
     Active Substance: KETAMINE
  4. CLONIDINE. [Suspect]
     Active Substance: CLONIDINE
  5. LIDOCAINE. [Suspect]
     Active Substance: LIDOCAINE

REACTIONS (7)
  - Toxicity to various agents [Recovered/Resolved]
  - Bradycardia [Recovered/Resolved]
  - Respiratory rate decreased [Recovered/Resolved]
  - Lethargy [Recovered/Resolved]
  - Accidental exposure to product by child [Recovered/Resolved]
  - Depressed level of consciousness [Recovered/Resolved]
  - Miosis [Recovered/Resolved]
